FAERS Safety Report 14680868 (Version 2)
Quarter: 2018Q2

REPORT INFORMATION
  Report Type: Report from Study
  Country: None (occurrence: TW)
  Receive Date: 20180326
  Receipt Date: 20180421
  Transmission Date: 20180711
  Serious: Yes (Hospitalization, Other)
  Sender: FDA-Public Use
  Company Number: TW-ABBVIE-18K-153-2296694-00

PATIENT
  Age: 76 Year
  Sex: Male
  Weight: 60 kg

DRUGS (3)
  1. HUMIRA [Suspect]
     Active Substance: ADALIMUMAB
     Indication: CROHN^S DISEASE
     Route: 058
     Dates: start: 20171212
  2. HUMIRA [Suspect]
     Active Substance: ADALIMUMAB
     Route: 058
     Dates: start: 20180322
  3. HUMIRA [Suspect]
     Active Substance: ADALIMUMAB
     Indication: CROHN^S DISEASE
     Route: 058
     Dates: start: 20111124

REACTIONS (7)
  - Gastric ulcer haemorrhage [Unknown]
  - Dizziness [Recovering/Resolving]
  - Gastrooesophageal reflux disease [Unknown]
  - Melaena [Recovered/Resolved]
  - Haematocrit decreased [Recovering/Resolving]
  - Haemoglobin decreased [Recovering/Resolving]
  - Post procedural complication [Unknown]

NARRATIVE: CASE EVENT DATE: 20180319
